FAERS Safety Report 6668506-2 (Version None)
Quarter: 2010Q2

REPORT INFORMATION
  Report Type: 
  Country: None (occurrence: None)
  Receive Date: 20100406
  Receipt Date: 20100309
  Transmission Date: 20101027
  Serious: Yes (Other)
  Sender: FDA-Public Use
  Company Number: US-JNJFOC-20091000164

PATIENT
  Sex: Female
  Weight: 7.71 kg

DRUGS (4)
  1. CONCENTRATED TYLENOL INFANT DROPS [Suspect]
     Indication: PYREXIA
  2. CONCENTRATED TYLENOL INFANT DROPS [Suspect]
  3. VITAMIN D [Concomitant]
     Indication: MEDICAL DIET
  4. IBUPROFEN [Concomitant]
     Indication: PYREXIA

REACTIONS (4)
  - DRUG INEFFECTIVE [None]
  - INAPPROPRIATE SCHEDULE OF DRUG ADMINISTRATION [None]
  - PYREXIA [None]
  - TRANSMISSION OF AN INFECTIOUS AGENT VIA A MEDICINAL PRODUCT [None]
